FAERS Safety Report 24922510 (Version 2)
Quarter: 2025Q1

REPORT INFORMATION
  Report Type: Spontaneous
  Country: US (occurrence: US)
  Receive Date: 20250204
  Receipt Date: 20250304
  Transmission Date: 20250409
  Serious: No
  Sender: PAREXEL
  Company Number: US-STEMLINE THERAPEUTICS B.V.-2025-STML-US000083

PATIENT

DRUGS (1)
  1. ORSERDU [Suspect]
     Active Substance: ELACESTRANT
     Indication: Breast cancer metastatic
     Dosage: 345 MG, ONCE DAILY
     Route: 048
     Dates: start: 20241220

REACTIONS (8)
  - Sciatica [Recovering/Resolving]
  - Urinary tract infection [Unknown]
  - Musculoskeletal pain [Not Recovered/Not Resolved]
  - Metastases to bone [Not Recovered/Not Resolved]
  - Cystitis [Recovering/Resolving]
  - Skin disorder [Recovering/Resolving]
  - Condition aggravated [Not Recovered/Not Resolved]
  - Dyspepsia [Recovered/Resolved]

NARRATIVE: CASE EVENT DATE: 20220101
